FAERS Safety Report 6946597-9 (Version None)
Quarter: 2010Q3

REPORT INFORMATION
  Report Type: 
  Country: None (occurrence: None)
  Receive Date: 20100824
  Receipt Date: 20100813
  Transmission Date: 20110219
  Serious: Yes (Hospitalization)
  Sender: FDA-Public Use
  Company Number: 2009AC000002

PATIENT
  Age: 65 Year
  Sex: Male

DRUGS (13)
  1. DIGOXIN [Suspect]
     Dosage: 0.250 MG; PO; PO
     Route: 048
     Dates: start: 20051201, end: 20080301
  2. TOPOROL [Concomitant]
  3. ATENOLOL [Concomitant]
  4. SOTALOL [Concomitant]
  5. ASPIRIN [Concomitant]
  6. FLECAINIDE ACETATE [Concomitant]
  7. PROPAFENONE HCL [Concomitant]
  8. PREVACID [Concomitant]
  9. CARAPATE [Concomitant]
  10. HYDROCHLOROTHIAZIDE [Concomitant]
  11. CALAN [Concomitant]
  12. AMBIENT [Concomitant]
  13. VALIUM [Concomitant]

REACTIONS (27)
  - ACUTE MYOCARDIAL INFARCTION [None]
  - AKINESIA [None]
  - ANXIETY [None]
  - ARRHYTHMIA [None]
  - ATELECTASIS [None]
  - ATRIAL FIBRILLATION [None]
  - ATRIAL FLUTTER [None]
  - CHEST DISCOMFORT [None]
  - CONDUCTION DISORDER [None]
  - CORONARY ARTERY DISEASE [None]
  - CORONARY ARTERY STENOSIS [None]
  - CORONARY ARTERY THROMBOSIS [None]
  - DIASTOLIC DYSFUNCTION [None]
  - ECONOMIC PROBLEM [None]
  - ELECTROCARDIOGRAM QT PROLONGED [None]
  - HYPERTROPHY [None]
  - IN-STENT CORONARY ARTERY RESTENOSIS [None]
  - ISCHAEMIA [None]
  - LEFT ATRIAL DILATATION [None]
  - LEFT VENTRICULAR HYPERTROPHY [None]
  - MITRAL VALVE INCOMPETENCE [None]
  - MULTIPLE INJURIES [None]
  - OEDEMA [None]
  - PALPITATIONS [None]
  - UNRESPONSIVE TO STIMULI [None]
  - VENTRICULAR FIBRILLATION [None]
  - VENTRICULAR HYPOKINESIA [None]
